FAERS Safety Report 13905904 (Version 1)
Quarter: 2017Q3

REPORT INFORMATION
  Report Type: Spontaneous
  Country: US (occurrence: US)
  Receive Date: 20170825
  Receipt Date: 20170825
  Transmission Date: 20171127
  Serious: Yes (Death)
  Sender: FDA-Public Use
  Company Number: None

PATIENT
  Age: 59 Year
  Sex: Female
  Weight: 58.5 kg

DRUGS (2)
  1. HERCEPTIN [Suspect]
     Active Substance: TRASTUZUMAB
     Indication: BREAST CANCER
     Route: 041
     Dates: start: 20170724
  2. NAVELBINE [Concomitant]
     Active Substance: VINORELBINE TARTRATE

REACTIONS (6)
  - Wheezing [None]
  - Feeling abnormal [None]
  - Dyspnoea [None]
  - Nausea [None]
  - Cardiac disorder [None]
  - Infusion related reaction [None]

NARRATIVE: CASE EVENT DATE: 20170724
